FAERS Safety Report 5079132-3 (Version None)
Quarter: 2006Q3

REPORT INFORMATION
  Report Type: 
  Country: None (occurrence: None)
  Receive Date: 20060720
  Receipt Date: 20050818
  Transmission Date: 20061208
  Serious: Yes (Life-Threatening, Other)
  Sender: FDA-Public Use
  Company Number: 2005109196

PATIENT
  Age: 59 Year
  Sex: Male

DRUGS (1)
  1. CELEBREX [Suspect]
     Indication: SHOULDER OPERATION
     Dosage: 400 MG (200 MG, 2 IN 1 D), ORAL
     Route: 048
     Dates: start: 20040101, end: 20050801

REACTIONS (3)
  - CHEST PAIN [None]
  - HEADACHE [None]
  - HYPERTENSION [None]
